FAERS Safety Report 25491991 (Version 1)
Quarter: 2025Q2

REPORT INFORMATION
  Report Type: Spontaneous
  Country: US (occurrence: US)
  Receive Date: 20250630
  Receipt Date: 20250630
  Transmission Date: 20250717
  Serious: No
  Sender: ROCHE
  Company Number: US-ROCHE-10000318914

PATIENT
  Sex: Female

DRUGS (1)
  1. XOLAIR [Suspect]
     Active Substance: OMALIZUMAB
     Indication: Urticaria
     Dosage: STRENGTH: 300 MG/2ML
     Route: 058
     Dates: start: 202501

REACTIONS (3)
  - Upper respiratory tract infection [Unknown]
  - Paranasal sinus hypersecretion [Unknown]
  - Cough [Unknown]
